FAERS Safety Report 15803000 (Version 1)
Quarter: 2018Q4

REPORT INFORMATION
  Report Type: Spontaneous
  Country: US (occurrence: US)
  Receive Date: 20181213
  Receipt Date: 20181213
  Transmission Date: 20190205
  Serious: No
  Sender: FDA-Public Use
  Company Number: None

PATIENT
  Age: 62 Year
  Sex: Male

DRUGS (5)
  1. NORVIR [Concomitant]
     Active Substance: RITONAVIR
  2. REYATAZ [Concomitant]
     Active Substance: ATAZANAVIR SULFATE
  3. TRUVADA [Concomitant]
     Active Substance: EMTRICITABINE\TENOFOVIR DISOPROXIL FUMARATE
  4. RITONAVIR TAB 100MG [Suspect]
     Active Substance: RITONAVIR
     Dates: start: 201701
  5. ATAZANAVIR. [Concomitant]
     Active Substance: ATAZANAVIR SULFATE

REACTIONS (1)
  - Laboratory test abnormal [None]

NARRATIVE: CASE EVENT DATE: 20181211
